FAERS Safety Report 4970257-7 (Version None)
Quarter: 2006Q2

REPORT INFORMATION
  Report Type: 
  Country: None (occurrence: None)
  Receive Date: 20060412
  Receipt Date: 20060331
  Transmission Date: 20061013
  Serious: Yes (Hospitalization, Other)
  Sender: FDA-Public Use
  Company Number: CH-BRISTOL-MYERS SQUIBB COMPANY-13337910

PATIENT
  Age: 61 Year
  Sex: Female

DRUGS (1)
  1. GLUCOVANCE [Suspect]
     Indication: DIABETES MELLITUS MALNUTRITION-RELATED
     Route: 048
     Dates: start: 20051108, end: 20051125

REACTIONS (5)
  - CHOLANGITIS ACUTE [None]
  - DECREASED APPETITE [None]
  - EYELID OEDEMA [None]
  - HEADACHE [None]
  - HEPATITIS TOXIC [None]
